FAERS Safety Report 15742238 (Version 1)
Quarter: 2018Q4

REPORT INFORMATION
  Report Type: Report from Study
  Country: DE (occurrence: DE)
  Receive Date: 20181219
  Receipt Date: 20181219
  Transmission Date: 20190205
  Serious: Yes (Life-Threatening, Hospitalization)
  Sender: FDA-Public Use
  Company Number: DE-EISAI MEDICAL RESEARCH-EC-2018-049107

PATIENT
  Age: 47 Year
  Sex: Male

DRUGS (4)
  1. KISPLYX [Suspect]
     Active Substance: LENVATINIB
     Indication: METASTATIC RENAL CELL CARCINOMA
     Dosage: UNKNOWN
     Route: 065
  2. KISPLYX [Suspect]
     Active Substance: LENVATINIB
     Dosage: UNKNOWN
     Route: 065
  3. EVEROLIMUS. [Suspect]
     Active Substance: EVEROLIMUS
     Dosage: UNKNOWN
     Route: 065
  4. EVEROLIMUS. [Suspect]
     Active Substance: EVEROLIMUS
     Indication: METASTATIC RENAL CELL CARCINOMA
     Dosage: UNKNOWN
     Route: 065

REACTIONS (3)
  - Fatigue [Unknown]
  - Decreased appetite [Unknown]
  - Pneumonia fungal [Unknown]
